FAERS Safety Report 26207591 (Version 1)
Quarter: 2025Q4

REPORT INFORMATION
  Report Type: Spontaneous
  Country: EU (occurrence: EU)
  Receive Date: 20251229
  Receipt Date: 20251229
  Transmission Date: 20260117
  Serious: Yes (Hospitalization, Other)
  Sender: MYLAN
  Company Number: EU-MYLANLABS-2025M1109066

PATIENT
  Age: 1 Decade
  Sex: Female

DRUGS (13)
  1. MESALAMINE [Suspect]
     Active Substance: MESALAMINE
     Indication: Inflammatory bowel disease
     Dosage: UNK
  2. MESALAMINE [Suspect]
     Active Substance: MESALAMINE
     Indication: Colitis ulcerative
     Dosage: 35 MILLIGRAM/KILOGRAM, RESTARTED
  3. AZATHIOPRINE [Suspect]
     Active Substance: AZATHIOPRINE
     Indication: Inflammatory bowel disease
     Dosage: UNK
  4. AZATHIOPRINE [Suspect]
     Active Substance: AZATHIOPRINE
     Indication: Colitis ulcerative
  5. INFLIXIMAB [Suspect]
     Active Substance: INFLIXIMAB
     Indication: Inflammatory bowel disease
     Dosage: 8.3 MILLIGRAM/KILOGRAM, EVERY 4 WEEKS
  6. INFLIXIMAB [Suspect]
     Active Substance: INFLIXIMAB
     Indication: Colitis ulcerative
  7. THALIDOMIDE [Suspect]
     Active Substance: THALIDOMIDE
     Indication: Inflammatory bowel disease
     Dosage: UNK
  8. THALIDOMIDE [Suspect]
     Active Substance: THALIDOMIDE
     Indication: Colitis ulcerative
  9. ADALIMUMAB [Suspect]
     Active Substance: ADALIMUMAB
     Indication: Inflammatory bowel disease
     Dosage: UNK
  10. ADALIMUMAB [Suspect]
     Active Substance: ADALIMUMAB
     Indication: Colitis ulcerative
  11. VEDOLIZUMAB [Suspect]
     Active Substance: VEDOLIZUMAB
     Indication: Inflammatory bowel disease
     Dosage: 10 MILLIGRAM/KILOGRAM, EVERY 8 WEEKS, INFUSION
  12. VEDOLIZUMAB [Suspect]
     Active Substance: VEDOLIZUMAB
     Indication: Colitis ulcerative
     Dosage: UNK, RESTARTED, INFUSION
  13. PIPERACILLIN AND TAZOBACTAM [Concomitant]
     Active Substance: PIPERACILLIN SODIUM\TAZOBACTAM SODIUM
     Indication: Antibiotic therapy
     Dosage: UNK

REACTIONS (3)
  - Tubulointerstitial nephritis [Recovering/Resolving]
  - Acute kidney injury [Recovering/Resolving]
  - Treatment failure [Unknown]
